FAERS Safety Report 5950001-7 (Version None)
Quarter: 2008Q4

REPORT INFORMATION
  Report Type: 
  Country: None (occurrence: None)
  Receive Date: 20081112
  Receipt Date: 20081104
  Transmission Date: 20090506
  Serious: Yes (Hospitalization)
  Sender: FDA-Public Use
  Company Number: JP-AVENTIS-200813298JP

PATIENT
  Age: 79 Year
  Sex: Female
  Weight: 40 kg

DRUGS (8)
  1. TAXOTERE [Suspect]
     Indication: BREAST CANCER METASTATIC
     Route: 041
     Dates: start: 20080924, end: 20080924
  2. TS-1 [Concomitant]
     Dates: start: 20071018, end: 20080601
  3. XELODA [Concomitant]
     Dates: start: 20080601, end: 20080701
  4. RINDERON                           /00008501/ [Concomitant]
     Route: 048
  5. AMLODIN [Concomitant]
     Route: 048
  6. FOLIAMIN [Concomitant]
     Route: 048
  7. GASTER D [Concomitant]
     Route: 048
  8. CHINESE MEDICINE [Concomitant]
     Route: 048

REACTIONS (6)
  - ALTERED STATE OF CONSCIOUSNESS [None]
  - CONFUSIONAL STATE [None]
  - DISORIENTATION [None]
  - DIZZINESS [None]
  - HALLUCINATION [None]
  - INCONTINENCE [None]
